FAERS Safety Report 10142865 (Version 1)
Quarter: 2014Q2

REPORT INFORMATION
  Report Type: Spontaneous
  Country: IT (occurrence: IT)
  Receive Date: 20140430
  Receipt Date: 20140430
  Transmission Date: 20141212
  Serious: Yes (Life-Threatening, Hospitalization)
  Sender: FDA-Public Use
  Company Number: IT-ASTRAZENECA-2014SE28890

PATIENT
  Age: 18885 Day
  Sex: Female

DRUGS (13)
  1. SEROQUEL [Suspect]
     Indication: DRUG ABUSE
     Route: 048
     Dates: start: 20140313, end: 20140313
  2. RIVOTRIL [Suspect]
     Indication: DRUG ABUSE
     Route: 048
     Dates: start: 20140313, end: 20140313
  3. TAVOR [Suspect]
     Indication: DRUG ABUSE
     Route: 048
     Dates: start: 20140313, end: 20140313
  4. SERENASE [Suspect]
     Indication: DRUG ABUSE
     Route: 048
     Dates: start: 20140313, end: 20140313
  5. BISOPROLOL [Concomitant]
  6. GABAPENTINE [Concomitant]
  7. ANTRA [Concomitant]
  8. COMBIVIR [Concomitant]
  9. PREZISTA [Concomitant]
  10. NORVIR [Concomitant]
  11. FOLINA [Concomitant]
  12. NEURONTIN [Concomitant]
  13. BACTRIM [Concomitant]

REACTIONS (4)
  - Acidosis [Recovering/Resolving]
  - Bradypnoea [Recovering/Resolving]
  - Coma [Recovering/Resolving]
  - Drug abuse [Recovering/Resolving]
